FAERS Safety Report 18964110 (Version 1)
Quarter: 2021Q1

REPORT INFORMATION
  Report Type: Spontaneous
  Country: US (occurrence: US)
  Receive Date: 20210303
  Receipt Date: 20210303
  Transmission Date: 20210420
  Serious: No
  Sender: FDA-Public Use
  Company Number: US-AMNEAL PHARMACEUTICALS-2020-AMRX-01523

PATIENT
  Age: 59 Year
  Sex: Male
  Weight: 90 kg

DRUGS (1)
  1. RYTARY [Suspect]
     Active Substance: CARBIDOPA\LEVODOPA
     Indication: PRODUCT USED FOR UNKNOWN INDICATION
     Dosage: 2 CAPSULES, TID
     Route: 048
     Dates: start: 20200125

REACTIONS (1)
  - Weight increased [Unknown]

NARRATIVE: CASE EVENT DATE: 20200501
